FAERS Safety Report 15239965 (Version 2)
Quarter: 2018Q4

REPORT INFORMATION
  Report Type: Report from Study
  Country: IT (occurrence: IT)
  Receive Date: 20180803
  Receipt Date: 20181003
  Transmission Date: 20190204
  Serious: Yes (Other)
  Sender: FDA-Public Use
  Company Number: IT-TEVA-2018-IT-934612

PATIENT
  Age: 77 Year
  Sex: Female

DRUGS (9)
  1. BEVACIZUMAB. [Concomitant]
     Active Substance: BEVACIZUMAB
  2. ZARZIO 30 MU/0.5 ML SOLUTION FOR INJECTION OR INFUSION IN PRE-FILLED S [Concomitant]
  3. FLUOROURACIL. [Concomitant]
     Active Substance: FLUOROURACIL
  4. CALCIUM LEVOFOLINATE [Concomitant]
     Active Substance: LEVOLEUCOVORIN CALCIUM
  5. LOBIVON 5 MG COMPRESSE [Concomitant]
  6. LOSARTAN. [Concomitant]
     Active Substance: LOSARTAN
  7. IRINOTECAN HYDROCHLORIDE TRIHYDRATE [Suspect]
     Active Substance: IRINOTECAN HYDROCHLORIDE
     Indication: RECTAL CANCER
     Route: 042
     Dates: start: 20180627, end: 20180627
  8. SELEPARINA 5.700 U.I. ANTIXA/0,6 ML SOLUZIONE INIETTABILE [Concomitant]
     Active Substance: NADROPARIN CALCIUM
  9. SAMYR 400 MG COMPRESSE GASTRORESISTENTI [Concomitant]

REACTIONS (2)
  - Leukopenia [Unknown]
  - Hyperbilirubinaemia [Unknown]

NARRATIVE: CASE EVENT DATE: 20180711
